FAERS Safety Report 8598917-X (Version None)
Quarter: 2012Q3

REPORT INFORMATION
  Report Type: 
  Country: None (occurrence: None)
  Receive Date: 20120816
  Receipt Date: 20120807
  Transmission Date: 20120928
  Serious: Yes (Hospitalization)
  Sender: FDA-Public Use
  Company Number: JP-B.I. PHARMACEUTICALS,INC./RIDGEFIELD-2012-BP-14743NB

PATIENT
  Sex: Male
  Weight: 81 kg

DRUGS (8)
  1. LANSOPRAZOLE [Concomitant]
     Indication: PROPHYLAXIS
     Dosage: 15 MG
     Route: 048
  2. DILTIAZEM HCL [Concomitant]
     Dosage: 200 MG
     Route: 048
  3. PRADAXA [Suspect]
     Indication: THROMBOSIS PROPHYLAXIS
     Dosage: 220 MG
     Route: 048
     Dates: start: 20120410, end: 20120723
  4. LANIRAPID [Concomitant]
     Indication: ATRIAL FIBRILLATION
     Dosage: 0.15 MG
     Route: 048
  5. LASIX [Concomitant]
     Dosage: 10 MG
     Route: 048
  6. ALLOPURINOL [Concomitant]
     Dosage: 100 MG
     Route: 048
  7. ASPIRIN [Concomitant]
     Dosage: 100 MG
     Route: 048
  8. CARVEDILOL [Concomitant]
     Dosage: 20 MG
     Route: 048

REACTIONS (1)
  - LARYNGEAL OEDEMA [None]
